FAERS Safety Report 7659188-1 (Version None)
Quarter: 2011Q3

REPORT INFORMATION
  Report Type: 
  Country: None (occurrence: None)
  Receive Date: 20110805
  Receipt Date: 20110727
  Transmission Date: 20111222
  Serious: Yes (Hospitalization)
  Sender: FDA-Public Use
  Company Number: ES-GLAXOSMITHKLINE-B0737508A

PATIENT
  Sex: Female

DRUGS (5)
  1. STUDY MEDICATION [Suspect]
     Indication: CHRONIC LYMPHOCYTIC LEUKAEMIA
     Dosage: 1000MG MONTHLY
     Route: 042
     Dates: start: 20100524
  2. MOTENS [Concomitant]
  3. CHLORAMBUCIL [Suspect]
     Indication: CHRONIC LYMPHOCYTIC LEUKAEMIA
     Dosage: 26MG EVERY TWO WEEKS
     Route: 048
     Dates: start: 20100524
  4. PREVENCOR [Concomitant]
  5. OMEPRAZOLE [Concomitant]

REACTIONS (1)
  - RESPIRATORY TRACT INFECTION [None]
